FAERS Safety Report 8892921 (Version 1)
Quarter: 2012Q4

REPORT INFORMATION
  Report Type: Spontaneous
  Country: TN (occurrence: None)
  Receive Date: 20121101
  Receipt Date: 20121101
  Transmission Date: 20130627
  Serious: Yes (Hospitalization, Other)
  Sender: FDA-Public Use
  Company Number: 2012RR-61505

PATIENT
  Age: 16 Year
  Sex: Female

DRUGS (2)
  1. CIPROFLOXACIN [Suspect]
     Indication: KIDNEY INFECTION
     Route: 048
  2. NIFLUMIC ACID [Suspect]
     Indication: KIDNEY INFECTION
     Route: 054

REACTIONS (2)
  - Renal papillary necrosis [None]
  - Dialysis [None]
